FAERS Safety Report 23833797 (Version 1)
Quarter: 2024Q2

REPORT INFORMATION
  Report Type: Spontaneous
  Country: CA (occurrence: CA)
  Receive Date: 20240509
  Receipt Date: 20240509
  Transmission Date: 20240716
  Serious: Yes (Hospitalization)
  Sender: FDA-Public Use
  Company Number: CA-BoehringerIngelheim-2024-BI-026349

PATIENT
  Age: 56 Year
  Sex: Male

DRUGS (1)
  1. JARDIANCE [Suspect]
     Active Substance: EMPAGLIFLOZIN
     Indication: Product used for unknown indication
     Route: 048

REACTIONS (9)
  - Septic shock [Recovering/Resolving]
  - Pyelonephritis [Recovering/Resolving]
  - Acute kidney injury [Recovering/Resolving]
  - Dysuria [Recovering/Resolving]
  - Haematuria [Recovering/Resolving]
  - Hyperhidrosis [Recovering/Resolving]
  - Pyrexia [Recovering/Resolving]
  - Prostatism [Recovering/Resolving]
  - Klebsiella infection [Recovering/Resolving]
